FAERS Safety Report 23067291 (Version 2)
Quarter: 2023Q4

REPORT INFORMATION
  Report Type: Report from Study
  Country: US (occurrence: US)
  Receive Date: 20231016
  Receipt Date: 20231017
  Transmission Date: 20240110
  Serious: Yes (Other)
  Sender: FDA-Public Use
  Company Number: US-ABBVIE-5450134

PATIENT
  Sex: Female

DRUGS (1)
  1. HUMIRA [Suspect]
     Active Substance: ADALIMUMAB
     Indication: Psoriatic arthropathy
     Dosage: FORM STRENGTH: 40 MILLIGRAM
     Route: 058

REACTIONS (10)
  - Upper limb fracture [Unknown]
  - Fatigue [Unknown]
  - Accident [Unknown]
  - Malaise [Unknown]
  - Spinal operation [Unknown]
  - Hypertension [Unknown]
  - Rib fracture [Unknown]
  - Device issue [Unknown]
  - Injection site reaction [Unknown]
  - Injection site discharge [Unknown]

NARRATIVE: CASE EVENT DATE: 20190101
